FAERS Safety Report 22639806 (Version 4)
Quarter: 2024Q3

REPORT INFORMATION
  Report Type: Spontaneous
  Country: CH (occurrence: CH)
  Receive Date: 20230626
  Receipt Date: 20240718
  Transmission Date: 20241017
  Serious: Yes (Other)
  Sender: PFIZER
  Company Number: CH-PFIZER INC-PV202300109960

PATIENT
  Age: 42 Year
  Sex: Female

DRUGS (3)
  1. LORAZEPAM [Suspect]
     Active Substance: LORAZEPAM
     Indication: Psychiatric disorder prophylaxis
     Dosage: UNK
  2. LORAZEPAM [Suspect]
     Active Substance: LORAZEPAM
     Dosage: 70 MG, DAILY (28 DF)
     Dates: start: 2015
  3. LORAZEPAM [Suspect]
     Active Substance: LORAZEPAM
     Dosage: 62.5 MG, DAILY (25DF)

REACTIONS (5)
  - Drug dependence [Unknown]
  - Paranoia [Unknown]
  - Affect lability [Unknown]
  - Panic attack [Unknown]
  - Prescribed overdose [Unknown]

NARRATIVE: CASE EVENT DATE: 20150101
